FAERS Safety Report 4471848-2 (Version None)
Quarter: 2004Q4

REPORT INFORMATION
  Report Type: 
  Country: None (occurrence: None)
  Receive Date: 20041006
  Receipt Date: 20040923
  Transmission Date: 20050328
  Serious: Yes (Hospitalization)
  Sender: FDA-Public Use
  Company Number: 2004071339

PATIENT
  Age: 66 Year
  Sex: Male
  Weight: 65 kg

DRUGS (12)
  1. NORVASC [Suspect]
     Indication: HYPERTENSION
     Dosage: 10 MG (5 MG, 2 IN 1 D), ORAL
     Route: 048
  2. PHENPROCOUMON (PHENPROCOUMON) [Suspect]
     Indication: THROMBOSIS
     Dosage: 18 MG/WEEK (3 MG), ORAL
     Route: 048
     Dates: start: 19950101
  3. DICLOFENAC RESINATE (DICLOFENAC RESINATE) [Suspect]
     Indication: BACK PAIN
     Dosage: 280 MG (140 MG, 2 IN 1 D), ORAL
     Route: 048
     Dates: start: 20040505, end: 20040528
  4. ALLOPURINOL [Concomitant]
  5. ATENOLOL [Concomitant]
  6. BENAZEPRIL HCL AND HYDROCHLOROTHIAZIDE [Concomitant]
  7. DIGITOXIN (DOGITOXIN) [Concomitant]
  8. VALSARTAN (VALASARTAN) [Concomitant]
  9. MOXONIDINE (MOXONIDINE) [Concomitant]
  10. TERAZOSIN (TERAZOSIN) [Concomitant]
  11. TORSEMIDE [Concomitant]
  12. ROFECOXIB [Concomitant]

REACTIONS (5)
  - BACK PAIN [None]
  - CARDIOVASCULAR DISORDER [None]
  - DUODENAL ULCER [None]
  - HAEMORRHAGIC DIATHESIS [None]
  - ULCER HAEMORRHAGE [None]
